FAERS Safety Report 4425248-1 (Version None)
Quarter: 2004Q3

REPORT INFORMATION
  Report Type: 
  Country: None (occurrence: None)
  Receive Date: 20040813
  Receipt Date: 20040705
  Transmission Date: 20050211
  Serious: Yes (Death, Hospitalization, Disabling, Other)
  Sender: FDA-Public Use
  Company Number: PHBS2004JP08887

PATIENT
  Age: 59 Year
  Sex: Male
  Weight: 73 kg

DRUGS (4)
  1. GLEEVEC [Suspect]
     Indication: GASTROINTESTINAL STROMAL TUMOUR
     Dosage: 300 MG/DAY
     Route: 048
     Dates: start: 20040515, end: 20040605
  2. LOXONIN [Concomitant]
     Route: 048
  3. SELBEX [Concomitant]
     Route: 048
  4. LASIX [Concomitant]
     Indication: ASCITES
     Dosage: 2 DF/D
     Route: 042
     Dates: start: 20040508, end: 20040605

REACTIONS (13)
  - CHEST X-RAY ABNORMAL [None]
  - CONDITION AGGRAVATED [None]
  - GASTRIC ULCER HAEMORRHAGE [None]
  - GASTROINTESTINAL STROMAL TUMOUR [None]
  - HAEMOGLOBIN DECREASED [None]
  - HEPATIC FUNCTION ABNORMAL [None]
  - HYPOXIA [None]
  - INTERSTITIAL LUNG DISEASE [None]
  - LIVER FUNCTION TEST ABNORMAL [None]
  - MALIGNANT NEOPLASM PROGRESSION [None]
  - RENAL FUNCTION TEST ABNORMAL [None]
  - RENAL IMPAIRMENT [None]
  - RESPIRATORY FAILURE [None]
